FAERS Safety Report 15361743 (Version 2)
Quarter: 2019Q3

REPORT INFORMATION
  Report Type: Report from Study
  Country: CA (occurrence: CA)
  Receive Date: 20180907
  Receipt Date: 20190925
  Transmission Date: 20191004
  Serious: Yes (Other)
  Sender: FDA-Public Use
  Company Number: CA-PFIZER INC-2018357523

PATIENT
  Age: 62 Year
  Sex: Male

DRUGS (6)
  1. AMIODARONE HCL [Suspect]
     Active Substance: AMIODARONE HYDROCHLORIDE
     Indication: ATRIAL FIBRILLATION
     Dosage: 30 MG, 1 EVERY 2 DAYS
     Route: 048
  2. BISOPROLOL [Concomitant]
     Active Substance: BISOPROLOL
     Dosage: UNK
     Route: 065
  3. IXEKIZUMAB [Suspect]
     Active Substance: IXEKIZUMAB
     Dosage: 80 MG, UNK
     Route: 058
     Dates: start: 20170512
  4. IXEKIZUMAB [Suspect]
     Active Substance: IXEKIZUMAB
     Dosage: 80 MG, UNK
     Route: 058
     Dates: start: 20170203
  5. IXEKIZUMAB [Suspect]
     Active Substance: IXEKIZUMAB
     Dosage: 80 MG, UNK
     Route: 058
  6. IXEKIZUMAB [Suspect]
     Active Substance: IXEKIZUMAB
     Dosage: 160 MG, UNK
     Route: 058
     Dates: start: 20170120

REACTIONS (14)
  - Rash macular [Not Recovered/Not Resolved]
  - Atrial fibrillation [Recovered/Resolved]
  - Dry skin [Not Recovered/Not Resolved]
  - Throat irritation [Recovered/Resolved]
  - Hepatic steatosis [Not Recovered/Not Resolved]
  - Injection site haemorrhage [Recovering/Resolving]
  - Nasopharyngitis [Unknown]
  - Injection site pain [Recovering/Resolving]
  - Liver injury [Unknown]
  - Erythema of eyelid [Recovering/Resolving]
  - Skin discolouration [Unknown]
  - Drug ineffective [Not Recovered/Not Resolved]
  - Eyelid oedema [Recovering/Resolving]
  - Weight increased [Not Recovered/Not Resolved]

NARRATIVE: CASE EVENT DATE: 20170122
